FAERS Safety Report 7664596-9 (Version None)
Quarter: 2011Q3

REPORT INFORMATION
  Report Type: 
  Country: None (occurrence: None)
  Receive Date: 20110806
  Receipt Date: 20110104
  Transmission Date: 20111222
  Serious: No
  Sender: FDA-Public Use
  Company Number: US-ABBOTT-11P-163-0695495-00

PATIENT
  Sex: Female
  Weight: 77.18 kg

DRUGS (16)
  1. NIASPAN [Suspect]
  2. ASPIRIN [Concomitant]
     Indication: PRODUCT USED FOR UNKNOWN INDICATION
     Dosage: EVERY AM
  3. CRESTOR [Concomitant]
     Indication: BLOOD CHOLESTEROL INCREASED
  4. NIASPAN [Suspect]
     Dosage: 3000 DAILY
  5. CYMBALTA [Concomitant]
     Indication: DEPRESSION
  6. TOPROL-XL [Concomitant]
     Indication: HYPERTENSION
  7. COQ10 [Concomitant]
     Indication: PRODUCT USED FOR UNKNOWN INDICATION
  8. ALPHA LIPOIC ACID [Concomitant]
     Indication: DIABETIC NEUROPATHY
  9. NIASPAN [Suspect]
     Indication: PRODUCT USED FOR UNKNOWN INDICATION
  10. LEVOTHYROXINE SODIUM [Concomitant]
     Indication: HYPOTHYROIDISM
     Route: 048
  11. NEXIUM [Concomitant]
     Indication: PRODUCT USED FOR UNKNOWN INDICATION
  12. NIASPAN [Suspect]
     Indication: BLOOD TRIGLYCERIDES INCREASED
     Dosage: MULTIPLE TITRATIONS
     Dates: end: 20101117
  13. CYMBALTA [Concomitant]
     Indication: FIBROMYALGIA
  14. GLIMEPIRIDE [Concomitant]
     Indication: DIABETES MELLITUS
  15. METFORMIN HCL [Concomitant]
     Indication: DIABETES MELLITUS
     Route: 048
  16. LISINOPRIL [Concomitant]
     Indication: HYPERTENSION

REACTIONS (4)
  - PRURITUS [None]
  - BURNING SENSATION [None]
  - BRONCHITIS [None]
  - SCRATCH [None]
